FAERS Safety Report 10098408 (Version 2)
Quarter: 2014Q3

REPORT INFORMATION
  Report Type: Spontaneous
  Country: JP (occurrence: None)
  Receive Date: 20140421
  Receipt Date: 20140703
  Transmission Date: 20150326
  Serious: Yes (Death, Other)
  Sender: FDA-Public Use
  Company Number: ABR_01591_2014

PATIENT
  Sex: Female
  Weight: .8 kg

DRUGS (3)
  1. AMPICILLIN (AMPICILLIN) [Suspect]
     Active Substance: AMPICILLIN
     Indication: FOETAL EXPOSURE DURING PREGNANCY
     Route: 064
     Dates: start: 19991027, end: 19991031
  2. ERYTHROMYCIN STEARATE [Suspect]
     Active Substance: ERYTHROMYCIN STEARATE
     Indication: FOETAL EXPOSURE DURING PREGNANCY
     Route: 064
     Dates: start: 19991027, end: 19991031
  3. RITODRINE HYDROCHLORIDE (RITODRINE HYDROCHLORIDE) [Concomitant]
     Indication: FOETAL EXPOSURE DURING PREGNANCY
     Route: 064
     Dates: start: 19991027, end: 19991114

REACTIONS (5)
  - Maternal drugs affecting foetus [None]
  - Premature baby [None]
  - Apgar score low [None]
  - Circulatory failure neonatal [None]
  - Neonatal respiratory failure [None]

NARRATIVE: CASE EVENT DATE: 199910
